FAERS Safety Report 17202378 (Version 1)
Quarter: 2019Q4

REPORT INFORMATION
  Report Type: Spontaneous
  Country: FR (occurrence: FR)
  Receive Date: 20191226
  Receipt Date: 20191226
  Transmission Date: 20200122
  Serious: Yes (Hospitalization, Other)
  Sender: FDA-Public Use
  Company Number: FR-SA-2019SA353535

PATIENT
  Age: 77 Year
  Sex: Female

DRUGS (2)
  1. STILNOX [Suspect]
     Active Substance: ZOLPIDEM TARTRATE
     Indication: POISONING DELIBERATE
     Dosage: 10 DF, TOTAL
     Route: 048
     Dates: start: 20191125, end: 20191125
  2. BISOPROLOL HEMIFUMARATE [Suspect]
     Active Substance: BISOPROLOL FUMARATE
     Indication: POISONING DELIBERATE
     Dosage: 10 DF, TOTAL
     Route: 048
     Dates: start: 20191125, end: 20191125

REACTIONS (6)
  - Intentional overdose [Unknown]
  - Pneumonia aspiration [Recovering/Resolving]
  - Atrial fibrillation [Recovered/Resolved]
  - Somnolence [Recovered/Resolved]
  - Poisoning deliberate [Recovered/Resolved]
  - Dyspnoea [Recovered/Resolved]

NARRATIVE: CASE EVENT DATE: 20191125
